FAERS Safety Report 4618202-8 (Version None)
Quarter: 2005Q1

REPORT INFORMATION
  Report Type: 
  Country: None (occurrence: None)
  Receive Date: 20050322
  Receipt Date: 20050307
  Transmission Date: 20050727
  Serious: Yes (Hospitalization, Other)
  Sender: FDA-Public Use
  Company Number: 2005042501

PATIENT
  Age: 54 Year
  Sex: Male
  Weight: 80 kg

DRUGS (1)
  1. FLUCONAZOLE [Suspect]
     Indication: ORAL CANDIDIASIS
     Dosage: 100 MG (1 D), ORAL
     Route: 048
     Dates: start: 20050128, end: 20050203

REACTIONS (10)
  - CEREBRAL TOXOPLASMOSIS [None]
  - CHOLANGITIS [None]
  - CYTOLYTIC HEPATITIS [None]
  - CYTOMEGALOVIRUS INFECTION [None]
  - DISEASE RECURRENCE [None]
  - EOSINOPHILIA [None]
  - HAEMOGLOBIN DECREASED [None]
  - HEPATOCELLULAR DAMAGE [None]
  - PLATELET COUNT DECREASED [None]
  - WHITE BLOOD CELL COUNT DECREASED [None]
